FAERS Safety Report 8719090 (Version 2)
Quarter: 2012Q4

REPORT INFORMATION
  Report Type: 
  Country: IT (occurrence: IT)
  Receive Date: 20120813
  Receipt Date: 20121018
  Transmission Date: 20130627
  Serious: Yes (Other)
  Sender: FDA-Public Use
  Company Number: IT-BIOGENIDEC-2012BI029045

PATIENT
  Age: 37 Year
  Sex: Female
  Weight: 67 kg

DRUGS (2)
  1. TYSABRI [Suspect]
     Indication: PRODUCT USED FOR UNKNOWN INDICATION
     Route: 042
     Dates: start: 20110309, end: 20110309
  2. FERROGRAD [Concomitant]
     Indication: ANAEMIA
     Route: 048
     Dates: start: 20090828, end: 20120131

REACTIONS (1)
  - Caesarean section [Recovered/Resolved]
